FAERS Safety Report 5464565-3 (Version None)
Quarter: 2007Q3

REPORT INFORMATION
  Report Type: 
  Country: None (occurrence: None)
  Receive Date: 20070921
  Receipt Date: 20070911
  Transmission Date: 20080115
  Serious: Yes (Death, Hospitalization, Other)
  Sender: FDA-Public Use
  Company Number: HQWYE122112SEP07

PATIENT
  Age: 49 Year
  Sex: Female

DRUGS (7)
  1. TIGECYCLINE [Suspect]
     Indication: PNEUMONIA KLEBSIELLA
     Dosage: 100 MG X 1 DOSE, THEN 50 MG Q12H
     Route: 042
  2. TIGECYCLINE [Suspect]
     Indication: EMPYEMA
     Dosage: UNKNOWN
     Route: 042
  3. FLUCONAZOLE [Concomitant]
     Indication: CANDIDIASIS
     Route: 042
  4. VANCOMYCIN [Concomitant]
     Route: 050
  5. METRONIDAZOLE [Concomitant]
     Indication: INFECTION
     Route: 042
  6. METRONIDAZOLE [Concomitant]
     Indication: CLOSTRIDIUM DIFFICILE COLITIS
  7. CIPROFLOXACIN [Concomitant]
     Indication: INFECTION
     Route: 042

REACTIONS (3)
  - DEATH [None]
  - DRUG INEFFECTIVE [None]
  - PATHOGEN RESISTANCE [None]
